FAERS Safety Report 8783306 (Version 5)
Quarter: 2014Q3

REPORT INFORMATION
  Report Type: Spontaneous
  Country: US (occurrence: US)
  Receive Date: 20120913
  Receipt Date: 20140722
  Transmission Date: 20150326
  Serious: No
  Sender: FDA-Public Use
  Company Number: US-ASTRAZENECA-2012SE69860

PATIENT
  Age: 47 Year
  Sex: Female

DRUGS (3)
  1. OMEPRAZOLE. [Suspect]
     Active Substance: OMEPRAZOLE
     Route: 048
  2. NEXIUM [Suspect]
     Active Substance: ESOMEPRAZOLE MAGNESIUM
     Route: 048
  3. NEXIUM [Suspect]
     Active Substance: ESOMEPRAZOLE MAGNESIUM
     Route: 048

REACTIONS (12)
  - Abdominal pain upper [Unknown]
  - Arthralgia [Unknown]
  - Abdominal discomfort [Unknown]
  - Oropharyngeal pain [Unknown]
  - Adverse event [Unknown]
  - Dyspepsia [Unknown]
  - Drug dose omission [Unknown]
  - Speech disorder [Unknown]
  - Pharyngitis [Unknown]
  - Drug ineffective [Unknown]
  - Intentional product misuse [Unknown]
  - Gastrooesophageal reflux disease [Unknown]
